FAERS Safety Report 18592432 (Version 5)
Quarter: 2021Q3

REPORT INFORMATION
  Report Type: Report from Study
  Country: US (occurrence: US)
  Receive Date: 20201209
  Receipt Date: 20210823
  Transmission Date: 20211014
  Serious: No
  Sender: FDA-Public Use
  Company Number: US-B.I. PHARMACEUTICALS,INC./RIDGEFIELD-2020-BI-047625

PATIENT
  Age: 62 Year
  Sex: Male

DRUGS (2)
  1. OFEV [Suspect]
     Active Substance: NINTEDANIB
     Indication: IDIOPATHIC PULMONARY FIBROSIS
     Dosage: 150MG BID
     Route: 048
     Dates: start: 20200902
  2. SENNA [SENNA ALEXANDRINA] [Suspect]
     Active Substance: SENNA LEAF
     Indication: CONSTIPATION

REACTIONS (24)
  - Abdominal discomfort [Unknown]
  - Constipation [Not Recovered/Not Resolved]
  - Flatulence [Unknown]
  - Constipation [Recovering/Resolving]
  - Cough [Not Recovered/Not Resolved]
  - Gingival bleeding [Recovered/Resolved]
  - Diarrhoea [Unknown]
  - Abnormal faeces [Not Recovered/Not Resolved]
  - Hypersensitivity [Not Recovered/Not Resolved]
  - Insomnia [Not Recovered/Not Resolved]
  - Weight decreased [Not Recovered/Not Resolved]
  - Respiration abnormal [Not Recovered/Not Resolved]
  - Flatulence [Recovering/Resolving]
  - Gingival bleeding [Not Recovered/Not Resolved]
  - Chest pain [Recovered/Resolved]
  - Dyspnoea [Recovering/Resolving]
  - Decreased appetite [Not Recovered/Not Resolved]
  - Pain [Not Recovered/Not Resolved]
  - Productive cough [Recovering/Resolving]
  - Gastrooesophageal reflux disease [Recovering/Resolving]
  - Dyspnoea [Not Recovered/Not Resolved]
  - Malaise [Recovering/Resolving]
  - Pain in extremity [Not Recovered/Not Resolved]
  - Musculoskeletal chest pain [Not Recovered/Not Resolved]

NARRATIVE: CASE EVENT DATE: 2020
